FAERS Safety Report 21043996 (Version 1)
Quarter: 2022Q3

REPORT INFORMATION
  Report Type: Spontaneous
  Country: US (occurrence: None)
  Receive Date: 20220705
  Receipt Date: 20220705
  Transmission Date: 20221027
  Serious: No
  Sender: FDA-Public Use
  Company Number: None

PATIENT
  Sex: Male

DRUGS (2)
  1. LENALIDOMIDE [Suspect]
     Active Substance: LENALIDOMIDE
     Indication: Metastasis
     Dosage: OTHER FREQUENCY : 14 D ON, 7 D OFF;?
     Route: 048
     Dates: start: 20220607
  2. LENALIDOMIDE [Suspect]
     Active Substance: LENALIDOMIDE
     Indication: Bone cancer

REACTIONS (9)
  - Disorientation [None]
  - Hypoaesthesia [None]
  - Decreased interest [None]
  - Confusional state [None]
  - Musculoskeletal stiffness [None]
  - Anxiety [None]
  - Dyspnoea [None]
  - Adverse drug reaction [None]
  - Cognitive disorder [None]
